FAERS Safety Report 6434859-3 (Version None)
Quarter: 2009Q4

REPORT INFORMATION
  Report Type: 
  Country: None (occurrence: None)
  Receive Date: 20091110
  Receipt Date: 20091102
  Transmission Date: 20100525
  Serious: Yes (Hospitalization, Other)
  Sender: FDA-Public Use
  Company Number: GB-TEVA-210157ISR

PATIENT
  Age: 45 Year
  Sex: Male
  Weight: 91 kg

DRUGS (4)
  1. PHENYTOIN [Suspect]
  2. BEVACIZUMAB [Suspect]
     Indication: GLIOBLASTOMA MULTIFORME
     Route: 042
     Dates: start: 20090721
  3. PEGFILGRASTIM [Suspect]
     Indication: CHEMOTHERAPY
     Route: 058
     Dates: start: 20080721
  4. FILGRASTIM [Suspect]
     Indication: CHEMOTHERAPY

REACTIONS (7)
  - BODY TEMPERATURE INCREASED [None]
  - CONFUSIONAL STATE [None]
  - CYTOKINE STORM [None]
  - DEEP VEIN THROMBOSIS [None]
  - DELIRIUM [None]
  - IMPETIGO [None]
  - PETECHIAE [None]
